FAERS Safety Report 5819606-8 (Version None)
Quarter: 2008Q3

REPORT INFORMATION
  Report Type: 
  Country: None (occurrence: None)
  Receive Date: 20080718
  Receipt Date: 20080708
  Transmission Date: 20090109
  Serious: Yes (Death, Hospitalization)
  Sender: FDA-Public Use
  Company Number: 002058

PATIENT
  Age: 51 Year
  Sex: Male

DRUGS (8)
  1. BUSULFEX [Suspect]
     Indication: STEM CELL TRANSPLANT
     Dosage: 24 ML, DAILY DOSE INTRAVENOUS;  32 ML, DAILY DOSE; INTRAVENOUS;  8 ML, DAILY DOSE; INTRAVENOUS
     Route: 042
     Dates: start: 20070531, end: 20070531
  2. BUSULFEX [Suspect]
     Indication: STEM CELL TRANSPLANT
     Dosage: 24 ML, DAILY DOSE INTRAVENOUS;  32 ML, DAILY DOSE; INTRAVENOUS;  8 ML, DAILY DOSE; INTRAVENOUS
     Route: 042
     Dates: start: 20070601, end: 20070603
  3. BUSULFEX [Suspect]
     Indication: STEM CELL TRANSPLANT
     Dosage: 24 ML, DAILY DOSE INTRAVENOUS;  32 ML, DAILY DOSE; INTRAVENOUS;  8 ML, DAILY DOSE; INTRAVENOUS
     Route: 042
     Dates: start: 20070604, end: 20070604
  4. CYCLOPHOSPHAMIDE [Concomitant]
  5. VALPROATE SODIUM [Concomitant]
  6. FILGRASTIM (FILGRASTIM) [Concomitant]
  7. METHOTREXATE [Concomitant]
  8. CYCLOSPORINE [Concomitant]

REACTIONS (9)
  - ANOREXIA [None]
  - CYSTITIS HAEMORRHAGIC [None]
  - DIARRHOEA [None]
  - MALAISE [None]
  - MALIGNANT NEOPLASM PROGRESSION [None]
  - NAUSEA [None]
  - STEM CELL TRANSPLANT [None]
  - STOMATITIS [None]
  - VOMITING [None]
